FAERS Safety Report 10310091 (Version 2)
Quarter: 2014Q3

REPORT INFORMATION
  Report Type: Spontaneous
  Country: FR (occurrence: FR)
  Receive Date: 20140717
  Receipt Date: 20140911
  Transmission Date: 20150326
  Serious: Yes (Hospitalization)
  Sender: FDA-Public Use
  Company Number: FR-JNJFOC-20140708504

PATIENT
  Age: 31 Year
  Sex: Female

DRUGS (5)
  1. REMICADE [Suspect]
     Active Substance: INFLIXIMAB
     Indication: ENTEROCOLITIS HAEMORRHAGIC
     Dosage: 400 MG
     Route: 042
     Dates: start: 20140401
  2. REMICADE [Suspect]
     Active Substance: INFLIXIMAB
     Indication: ENTEROCOLITIS HAEMORRHAGIC
     Route: 042
     Dates: start: 20140415
  3. IMUREL [Suspect]
     Active Substance: AZATHIOPRINE SODIUM
     Indication: PRODUCT USED FOR UNKNOWN INDICATION
     Route: 048
     Dates: start: 201404, end: 20140512
  4. CORTANCYL [Concomitant]
     Active Substance: PREDNISONE
     Indication: ENTEROCOLITIS HAEMORRHAGIC
     Route: 048
     Dates: start: 201303
  5. PENTASA [Concomitant]
     Active Substance: MESALAMINE
     Indication: ENTEROCOLITIS HAEMORRHAGIC
     Route: 054
     Dates: start: 201303

REACTIONS (4)
  - Febrile neutropenia [Unknown]
  - Bone marrow failure [Recovered/Resolved]
  - Campylobacter infection [Unknown]
  - Anaemia [Recovered/Resolved]

NARRATIVE: CASE EVENT DATE: 201405
